FAERS Safety Report 24054425 (Version 1)
Quarter: 2024Q3

REPORT INFORMATION
  Report Type: Spontaneous
  Country: US (occurrence: US)
  Receive Date: 20240705
  Receipt Date: 20240705
  Transmission Date: 20241016
  Serious: Yes (Hospitalization, Other)
  Sender: RANBAXY
  Company Number: US-SUN PHARMACEUTICAL INDUSTRIES LTD-2024R1-454923

PATIENT
  Age: 70 Year
  Sex: Male

DRUGS (6)
  1. DEXAMETHASONE [Suspect]
     Active Substance: DEXAMETHASONE
     Indication: COVID-19
     Dosage: UNK
     Route: 065
  2. DEXAMETHASONE [Suspect]
     Active Substance: DEXAMETHASONE
     Indication: Acute respiratory failure
  3. BARICITINIB [Suspect]
     Active Substance: BARICITINIB
     Indication: COVID-19
     Dosage: UNK
     Route: 065
  4. BARICITINIB [Suspect]
     Active Substance: BARICITINIB
     Indication: Acute respiratory failure
  5. REMDESIVIR [Suspect]
     Active Substance: REMDESIVIR
     Indication: COVID-19
     Dosage: UNK
     Route: 065
  6. REMDESIVIR [Suspect]
     Active Substance: REMDESIVIR
     Indication: Acute respiratory failure

REACTIONS (1)
  - Therapy non-responder [Unknown]
